FAERS Safety Report 12717465 (Version 1)
Quarter: 2016Q3

REPORT INFORMATION
  Report Type: Spontaneous
  Country: US (occurrence: US)
  Receive Date: 20160906
  Receipt Date: 20160906
  Transmission Date: 20161109
  Serious: Yes (Hospitalization)
  Sender: FDA-Public Use
  Company Number: US-PFIZER INC-3005790

PATIENT
  Age: 17 Year
  Sex: Female
  Weight: 59.8 kg

DRUGS (6)
  1. CRIZOTINIB [Suspect]
     Active Substance: CRIZOTINIB
     Dosage: 165 MG/M2, ON DAYS 1-21,  FREQ: 2 DAY; INTERVAL: 1
     Route: 048
     Dates: start: 20150526, end: 20150608
  2. DEXAMETHASONE. [Suspect]
     Active Substance: DEXAMETHASONE
     Dosage: 5 MG/M2, ON DAYS 1-5, FREQ: 2 DAY; INTERVAL: 1
     Route: 048
     Dates: start: 20150526, end: 20150530
  3. DOXORUBICIN HYDROCHLORIDE. [Suspect]
     Active Substance: DOXORUBICIN HYDROCHLORIDE
     Dosage: 25 MG/M2, OVER 1-15 MINS ON DAYS 4 AND 5
     Route: 042
     Dates: start: 20150501, end: 20150530
  4. CYCLOPHOSPHAMIDE. [Suspect]
     Active Substance: CYCLOPHOSPHAMIDE
     Dosage: 200 MG/M2, OVER 15-30MINS ON DAYS 1-5
     Route: 042
     Dates: start: 20150526, end: 20150530
  5. CRIZOTINIB [Suspect]
     Active Substance: CRIZOTINIB
     Dosage: 165 MG/M2, FREQ: 2 DAY; INTERVAL: 1
     Route: 048
     Dates: start: 20150101, end: 20150101
  6. METHOTREXATE SODIUM. [Suspect]
     Active Substance: METHOTREXATE SODIUM
     Dosage: 3000 MG/M2, OVER  3HOURS ON DAY 1
     Route: 042
     Dates: start: 20150526, end: 20150526

REACTIONS (3)
  - Stomatitis [Recovered/Resolved]
  - Clostridium test positive [Unknown]
  - Febrile neutropenia [Unknown]

NARRATIVE: CASE EVENT DATE: 20150606
